FAERS Safety Report 4634170-7 (Version None)
Quarter: 2005Q2

REPORT INFORMATION
  Report Type: 
  Country: None (occurrence: None)
  Receive Date: 20050413
  Receipt Date: 20050404
  Transmission Date: 20051028
  Serious: Yes (Life-Threatening)
  Sender: FDA-Public Use
  Company Number: 200513068GDDC

PATIENT
  Age: 24 Year
  Sex: Female
  Weight: 70 kg

DRUGS (2)
  1. METRONIDAZOLE [Suspect]
     Indication: ABSCESS
     Route: 042
     Dates: start: 20040315, end: 20040315
  2. TRAMADOL HCL [Concomitant]
     Indication: PAIN
     Route: 048
     Dates: start: 20040314, end: 20040314

REACTIONS (2)
  - SWELLING FACE [None]
  - THROAT TIGHTNESS [None]
